FAERS Safety Report 8119221-X (Version None)
Quarter: 2012Q1

REPORT INFORMATION
  Report Type: 
  Country: None (occurrence: None)
  Receive Date: 20120207
  Receipt Date: 20120123
  Transmission Date: 20120608
  Serious: Yes (Hospitalization, Other)
  Sender: FDA-Public Use
  Company Number: US-ROCHE-1030236

PATIENT
  Sex: Female
  Weight: 48.165 kg

DRUGS (20)
  1. OS-CAL 500 WITH D [Concomitant]
     Dosage: 500/200 MG-IU
     Route: 048
  2. NITROSTAT [Concomitant]
     Indication: CHEST PAIN
     Route: 060
  3. ZANTAC [Concomitant]
     Route: 048
  4. PROCHLORPERAZINE MALEATE [Concomitant]
     Indication: NAUSEA
     Route: 048
  5. LORAZEPAM [Concomitant]
     Indication: INSOMNIA
     Route: 048
  6. ZELBORAF [Suspect]
     Indication: METASTATIC MALIGNANT MELANOMA
     Route: 048
     Dates: start: 20111001, end: 20120103
  7. PREDNISONE TAB [Concomitant]
  8. ASPIRIN [Concomitant]
     Route: 048
  9. TRAZODONE HCL [Concomitant]
     Indication: INSOMNIA
  10. BACTRIM DS [Concomitant]
     Dosage: 800/160 MG
     Route: 048
  11. ZOCOR [Concomitant]
     Route: 048
  12. ZELBORAF [Suspect]
     Dates: start: 20120116
  13. ULTRAM [Concomitant]
     Indication: PAIN
  14. TRAMADOL HCL [Concomitant]
     Indication: PAIN
  15. ACETAMINOPHEN [Concomitant]
     Indication: PAIN
     Route: 048
  16. ACETAMINOPHEN [Concomitant]
  17. PREDNISONE TAB [Concomitant]
     Route: 048
  18. LOVAZA [Concomitant]
  19. METOPROLOL TARTRATE [Concomitant]
     Route: 048
  20. TESSALON [Concomitant]
     Indication: COUGH
     Route: 048

REACTIONS (6)
  - CORONARY ARTERY DISEASE [None]
  - DECREASED APPETITE [None]
  - CYSTITIS [None]
  - URINARY TRACT INFECTION [None]
  - ABNORMAL LOSS OF WEIGHT [None]
  - DIARRHOEA [None]
